FAERS Safety Report 24905217 (Version 1)
Quarter: 2025Q1

REPORT INFORMATION
  Report Type: Spontaneous
  Country: US (occurrence: US)
  Receive Date: 20250130
  Receipt Date: 20250130
  Transmission Date: 20250409
  Serious: No
  Sender: MAYNE
  Company Number: US-MAYNE PHARMA-2024MYN000520

PATIENT

DRUGS (1)
  1. RHOFADE [Suspect]
     Active Substance: OXYMETAZOLINE HYDROCHLORIDE
     Indication: Rosacea
     Dosage: UNK, QD
     Route: 061
     Dates: start: 20240313, end: 2024

REACTIONS (2)
  - Paraesthesia [Recovered/Resolved]
  - Vision blurred [Recovered/Resolved]
